FAERS Safety Report 16787982 (Version 1)
Quarter: 2019Q3

REPORT INFORMATION
  Report Type: Spontaneous
  Country: US (occurrence: US)
  Receive Date: 20190909
  Receipt Date: 20190909
  Transmission Date: 20191005
  Serious: Yes (Hospitalization, Other)
  Sender: FDA-Public Use
  Company Number: US-JAZZ-2019-US-012482

PATIENT
  Age: 18 Year
  Sex: Male

DRUGS (1)
  1. CLOZAPINE ODT [Suspect]
     Active Substance: CLOZAPINE
     Indication: SCHIZOPHRENIA
     Dosage: MG, QD
     Route: 048

REACTIONS (2)
  - Pericarditis [Unknown]
  - Myocarditis [Unknown]
